FAERS Safety Report 22654771 (Version 2)
Quarter: 2023Q2

REPORT INFORMATION
  Report Type: Report from Study
  Country: CA (occurrence: CA)
  Receive Date: 20230629
  Receipt Date: 20230630
  Transmission Date: 20230722
  Serious: Yes (Hospitalization, Other)
  Sender: FDA-Public Use
  Company Number: CA-HLS-202301592

PATIENT
  Age: 73 Year
  Sex: Male

DRUGS (2)
  1. CLOZARIL [Suspect]
     Active Substance: CLOZAPINE
     Dosage: MISSED ONE DOSE OF CLOZARIL IN JUNE 2023
     Route: 048
     Dates: start: 20020503
  2. CLOZAPINE [Suspect]
     Active Substance: CLOZAPINE
     Dosage: SWITCHED TO GENERIC OVER 3 YEARS AGO
     Route: 065

REACTIONS (1)
  - Hip fracture [Recovered/Resolved]

NARRATIVE: CASE EVENT DATE: 20230624
